FAERS Safety Report 8492829-8 (Version None)
Quarter: 2012Q3

REPORT INFORMATION
  Report Type: 
  Country: None (occurrence: None)
  Receive Date: 20120706
  Receipt Date: 20120625
  Transmission Date: 20120928
  Serious: Yes (Other)
  Sender: FDA-Public Use
  Company Number: US-BRISTOL-MYERS SQUIBB COMPANY-16710436

PATIENT
  Age: 31 Year
  Sex: Female

DRUGS (1)
  1. ABILIFY [Suspect]
     Indication: SCHIZOPHRENIA
     Dosage: DOSE INCREASED TO 12MG/D AT 30 WEEKS AND TO 18 MG/D AT 34 WK

REACTIONS (3)
  - PREGNANCY [None]
  - NORMAL NEWBORN [None]
  - BREECH PRESENTATION [None]
